FAERS Safety Report 8906316 (Version 2)
Quarter: 2012Q4

REPORT INFORMATION
  Report Type: Spontaneous
  Country: CN (occurrence: None)
  Receive Date: 20121107
  Receipt Date: 20121115
  Transmission Date: 20130627
  Serious: Yes (Hospitalization)
  Sender: FDA-Public Use
  Company Number: DSA_60743_2012

PATIENT
  Sex: Male

DRUGS (3)
  1. 5-FU [Suspect]
     Indication: HEAD AND NECK CANCER
     Dosage: DF; every cycle Intravenous (not otherwise specified)
     Dates: start: 20120929
  2. DOCETAXEL [Suspect]
     Indication: HEAD AND NECK CANCER
     Dosage: DF; every cycle Intravenous (not otherwise specified)
     Dates: start: 20120929
  3. CISPLATIN [Suspect]
     Indication: HEAD AND NECK CANCER
     Dosage: DF; every cycle Intravenous (not otherwise specified)
     Dates: start: 20120929

REACTIONS (1)
  - Neutropenia [None]
